FAERS Safety Report 8588235 (Version 9)
Quarter: 2014Q4

REPORT INFORMATION
  Report Type: Spontaneous
  Country: JP (occurrence: JP)
  Receive Date: 20120531
  Receipt Date: 20141118
  Transmission Date: 20150529
  Serious: Yes (Life-Threatening, Hospitalization, Other)
  Sender: FDA-Public Use
  Company Number: PHHY2011JP112751

PATIENT
  Age: 88 Year
  Sex: Female

DRUGS (8)
  1. TASIGNA [Suspect]
     Active Substance: NILOTINIB
     Indication: CHRONIC MYELOID LEUKAEMIA
     Dosage: 400 MG, DAILY
     Route: 048
     Dates: start: 20090702
  2. AMLODIN [Concomitant]
     Active Substance: AMLODIPINE BESYLATE
     Indication: CHRONIC MYELOID LEUKAEMIA
     Route: 048
     Dates: start: 20110119
  3. SLOW K [Concomitant]
     Active Substance: POTASSIUM CHLORIDE
     Indication: CHRONIC MYELOID LEUKAEMIA
     Dosage: 50 MG, UNK
     Route: 048
     Dates: start: 20110119
  4. LASIX [Concomitant]
     Active Substance: FUROSEMIDE
     Indication: CHRONIC MYELOID LEUKAEMIA
     Dosage: 20 MG, BID
     Dates: start: 20110119
  5. DIGOXIN. [Concomitant]
     Active Substance: DIGOXIN
     Indication: CHRONIC MYELOID LEUKAEMIA
     Route: 048
     Dates: start: 20110119
  6. TASIGNA [Suspect]
     Active Substance: NILOTINIB
     Dosage: 400 MG, DAILY
     Route: 048
     Dates: start: 20110303, end: 20110516
  7. LASIX [Concomitant]
     Active Substance: FUROSEMIDE
     Indication: PLEURAL EFFUSION
  8. TASIGNA [Suspect]
     Active Substance: NILOTINIB
     Dosage: 800 MG, DAILY
     Route: 048
     Dates: start: 20100710, end: 20110106

REACTIONS (13)
  - Pulmonary oedema [Recovering/Resolving]
  - Hyperhidrosis [Unknown]
  - Hypokalaemia [Recovering/Resolving]
  - Dyspnoea [Unknown]
  - Tachycardia [Unknown]
  - Cardiac failure [Recovered/Resolved]
  - Electrocardiogram QT prolonged [Recovered/Resolved]
  - Electrocardiogram ST segment depression [Unknown]
  - Palpitations [Unknown]
  - Cardiomegaly [Unknown]
  - Pleural effusion [Recovered/Resolved]
  - Respiratory disorder [Recovering/Resolving]
  - Atrial fibrillation [Unknown]

NARRATIVE: CASE EVENT DATE: 20100712
